FAERS Safety Report 8610259 (Version 5)
Quarter: 2013Q4

REPORT INFORMATION
  Report Type: Spontaneous
  Country: CA (occurrence: CA)
  Receive Date: 20120612
  Receipt Date: 20131025
  Transmission Date: 20140711
  Serious: Yes (Death, Hospitalization)
  Sender: FDA-Public Use
  Company Number: PHHY2012CA049304

PATIENT
  Age: 27 Year
  Sex: Female

DRUGS (13)
  1. OXCARBAZEPINE [Suspect]
     Indication: STATUS EPILEPTICUS
     Dosage: 1 OT, UP TO 100 MG/HOUR
  2. LEVETIRACETAM [Suspect]
     Indication: STATUS EPILEPTICUS
  3. CLOBAZAM [Suspect]
     Indication: STATUS EPILEPTICUS
  4. TOPIRAMATE [Suspect]
     Indication: STATUS EPILEPTICUS
  5. VALPROIC ACID [Suspect]
     Indication: STATUS EPILEPTICUS
  6. MIDAZOLAM [Suspect]
     Indication: STATUS EPILEPTICUS
  7. MAGNESIUM [Suspect]
     Indication: STATUS EPILEPTICUS
  8. DEXAMETHASONE [Suspect]
  9. IMMUNOGLOBULINS [Suspect]
     Indication: STATUS EPILEPTICUS
  10. ISOFLURANE [Suspect]
     Indication: STATUS EPILEPTICUS
  11. LACOSAMIDE [Suspect]
     Indication: STATUS EPILEPTICUS
  12. PENTOBARBITAL [Concomitant]
     Indication: STATUS EPILEPTICUS
  13. KETAMINE [Concomitant]
     Indication: STATUS EPILEPTICUS

REACTIONS (3)
  - Death [Fatal]
  - Status epilepticus [Unknown]
  - Drug ineffective [Unknown]
